FAERS Safety Report 17106548 (Version 1)
Quarter: 2019Q4

REPORT INFORMATION
  Report Type: Spontaneous
  Country: US (occurrence: US)
  Receive Date: 20191203
  Receipt Date: 20191203
  Transmission Date: 20200122
  Serious: No
  Sender: FDA-Public Use
  Company Number: US-ANTARES PHARMA, INC.-2018-LIT-ME-0587

PATIENT
  Age: 59 Year
  Sex: Female

DRUGS (4)
  1. NAPROXEN SODIUM. [Concomitant]
     Active Substance: NAPROXEN SODIUM
     Indication: RHEUMATOID ARTHRITIS
  2. METHOTREXATE. [Suspect]
     Active Substance: METHOTREXATE
     Indication: RHEUMATOID ARTHRITIS
  3. ADALIMUMAB [Suspect]
     Active Substance: ADALIMUMAB
     Indication: RHEUMATOID ARTHRITIS
  4. PREDNISONE. [Concomitant]
     Active Substance: PREDNISONE
     Indication: RHEUMATOID ARTHRITIS

REACTIONS (21)
  - Erythema [Recovered/Resolved]
  - Glomerular filtration rate decreased [Recovered/Resolved]
  - Petechiae [Recovered/Resolved]
  - Pancytopenia [Recovered/Resolved]
  - Malaise [Recovered/Resolved]
  - Lip haemorrhage [Recovered/Resolved]
  - Transaminases increased [Recovered/Resolved]
  - Blood bilirubin increased [Recovered/Resolved]
  - Mucosal inflammation [Recovered/Resolved]
  - Jaundice [Recovered/Resolved]
  - Toxicity to various agents [Recovered/Resolved]
  - Renal disorder [Recovered/Resolved]
  - Acute kidney injury [Recovered/Resolved]
  - Abdominal pain [Recovered/Resolved]
  - Rash [Recovered/Resolved]
  - Ocular icterus [Recovered/Resolved]
  - Papule [Recovered/Resolved]
  - Recall phenomenon [Recovered/Resolved]
  - Nausea [Recovered/Resolved]
  - Blood creatinine increased [Recovered/Resolved]
  - Urinary tract infection bacterial [Recovered/Resolved]
